FAERS Safety Report 12602944 (Version 2)
Quarter: 2016Q3

REPORT INFORMATION
  Report Type: Spontaneous
  Country: US (occurrence: US)
  Receive Date: 20160728
  Receipt Date: 20160908
  Transmission Date: 20161109
  Serious: No
  Sender: FDA-Public Use
  Company Number: US-MERZ NORTH AMERICA, INC.-16MRZ-00435

PATIENT
  Age: 57 Year
  Sex: Male

DRUGS (1)
  1. XEOMIN [Suspect]
     Active Substance: INCOBOTULINUMTOXINA
     Indication: SKIN WRINKLING
     Dosage: 37 UNITS ; 24 UNITS 06/14, 10 UNITS 07/01, 3 UNITS 07/23
     Route: 030

REACTIONS (1)
  - Drug ineffective [Unknown]
